FAERS Safety Report 10219588 (Version 1)
Quarter: 2014Q2

REPORT INFORMATION
  Report Type: Spontaneous
  Country: US (occurrence: None)
  Receive Date: 20140604
  Receipt Date: 20140604
  Transmission Date: 20141212
  Serious: No
  Sender: FDA-Public Use
  Company Number: None

PATIENT
  Age: 91 Year
  Sex: Female

DRUGS (2)
  1. LETROZOLE [Suspect]
     Indication: BREAST CANCER FEMALE
     Route: 048
     Dates: start: 20130111
  2. LETROZOLE [Suspect]
     Indication: BREAST CANCER FEMALE
     Route: 048
     Dates: start: 20130111

REACTIONS (1)
  - Transient ischaemic attack [None]
